FAERS Safety Report 25451455 (Version 2)
Quarter: 2025Q2

REPORT INFORMATION
  Report Type: Spontaneous
  Country: JP (occurrence: JP)
  Receive Date: 20250618
  Receipt Date: 20250620
  Transmission Date: 20250717
  Serious: Yes (Other)
  Sender: MERCK SHARP & DOHME LLC
  Company Number: JP-009507513-2296039

PATIENT
  Age: 43 Year
  Sex: Female

DRUGS (5)
  1. KEYTRUDA [Suspect]
     Active Substance: PEMBROLIZUMAB
     Indication: Triple negative breast cancer
     Dosage: 200 MG, Q3W
     Route: 041
     Dates: start: 20240905, end: 20250513
  2. CARBOPLATIN [Suspect]
     Active Substance: CARBOPLATIN
     Indication: Triple negative breast cancer
     Route: 041
     Dates: start: 202408, end: 202410
  3. PACLITAXEL [Suspect]
     Active Substance: PACLITAXEL
     Indication: Triple negative breast cancer
     Route: 041
     Dates: start: 202408, end: 202410
  4. DOXORUBICIN [Suspect]
     Active Substance: DOXORUBICIN
     Indication: Triple negative breast cancer
     Route: 041
     Dates: start: 202412, end: 202502
  5. DOXORUBICIN [Suspect]
     Active Substance: DOXORUBICIN
     Indication: Triple negative breast cancer
     Route: 041
     Dates: start: 202412, end: 202502

REACTIONS (4)
  - Interleukin-2 receptor increased [Recovered/Resolved]
  - Haemophagocytic lymphohistiocytosis [Unknown]
  - Systemic immune activation [Unknown]
  - Lymphoma [Unknown]

NARRATIVE: CASE EVENT DATE: 20250101
